FAERS Safety Report 6687101-2 (Version None)
Quarter: 2010Q2

REPORT INFORMATION
  Report Type: 
  Country: None (occurrence: None)
  Receive Date: 20100419
  Receipt Date: 20100407
  Transmission Date: 20101027
  Serious: Yes (Hospitalization)
  Sender: FDA-Public Use
  Company Number: PHHO2010AU04918

PATIENT
  Sex: Male
  Weight: 72.1 kg

DRUGS (4)
  1. EXELON [Suspect]
     Indication: DEMENTIA
     Dosage: 1.5 MG, BID
     Route: 048
     Dates: start: 20090328
  2. CARTIA XT [Concomitant]
     Indication: HYPERTENSION
  3. AVAPRO [Concomitant]
     Indication: HYPERTENSION
  4. MADOPAR [Concomitant]
     Indication: PARKINSON'S DISEASE

REACTIONS (3)
  - CARDIAC PACEMAKER INSERTION [None]
  - SICK SINUS SYNDROME [None]
  - SYNCOPE [None]
